FAERS Safety Report 5169370-3 (Version None)
Quarter: 2006Q4

REPORT INFORMATION
  Report Type: 
  Country: None (occurrence: None)
  Receive Date: 20061211
  Receipt Date: 20061201
  Transmission Date: 20070319
  Serious: Yes (Hospitalization)
  Sender: FDA-Public Use
  Company Number: US-BRISTOL-MYERS SQUIBB COMPANY-13598107

PATIENT
  Age: 70 Year
  Sex: Male

DRUGS (6)
  1. METFORMIN HCL [Suspect]
  2. GLIPIZIDE [Suspect]
  3. AGGRENOX [Concomitant]
  4. MICARDIS [Concomitant]
  5. CLOPIDOGREL BISULFATE [Concomitant]
  6. PLACEBO [Concomitant]

REACTIONS (2)
  - CELLULITIS [None]
  - HYPOGLYCAEMIA [None]
